FAERS Safety Report 8545905-5 (Version None)
Quarter: 2012Q3

REPORT INFORMATION
  Report Type: 
  Country: None (occurrence: None)
  Receive Date: 20120727
  Receipt Date: 20120403
  Transmission Date: 20120928
  Serious: No
  Sender: FDA-Public Use
  Company Number: US-ASTRAZENECA-2011SE70459

PATIENT
  Age: 61 Year
  Sex: Female

DRUGS (4)
  1. CRESTOR [Suspect]
     Route: 048
  2. CRESTOR [Suspect]
     Route: 048
  3. SEROQUEL [Suspect]
     Route: 048
  4. ASPIRIN [Concomitant]

REACTIONS (8)
  - HEADACHE [None]
  - PAIN IN EXTREMITY [None]
  - DIABETIC NEUROPATHY [None]
  - BLOOD CHOLESTEROL INCREASED [None]
  - DIZZINESS [None]
  - TYPE 2 DIABETES MELLITUS [None]
  - GLAUCOMA [None]
  - DIPLOPIA [None]
